FAERS Safety Report 5206926-3 (Version None)
Quarter: 2007Q1

REPORT INFORMATION
  Report Type: 
  Country: None (occurrence: None)
  Receive Date: 20070105
  Receipt Date: 20070105
  Transmission Date: 20070707
  Serious: Yes (Hospitalization)
  Sender: FDA-Public Use
  Company Number: None

PATIENT
  Age: 44 Year
  Sex: Female
  Weight: 125 kg

DRUGS (1)
  1. INSULIN GLARGINE [Suspect]
     Indication: DIABETES MELLITUS NON-INSULIN-DEPENDENT
     Dosage: 20 UNITS SQ HS
     Route: 058

REACTIONS (5)
  - DIZZINESS POSTURAL [None]
  - DRUG ABUSER [None]
  - HYPERGLYCAEMIA [None]
  - PAIN IN EXTREMITY [None]
  - TREATMENT NONCOMPLIANCE [None]
